FAERS Safety Report 14498026 (Version 1)
Quarter: 2018Q1

REPORT INFORMATION
  Report Type: Spontaneous
  Country: US (occurrence: US)
  Receive Date: 20180206
  Receipt Date: 20180206
  Transmission Date: 20180509
  Serious: Yes (Death)
  Sender: FDA-Public Use
  Company Number: None

PATIENT
  Sex: Female

DRUGS (17)
  1. FLUOXETINE [Concomitant]
     Active Substance: FLUOXETINE HYDROCHLORIDE
  2. FUROSEMIDE. [Concomitant]
     Active Substance: FUROSEMIDE
  3. LEVEMIR [Concomitant]
     Active Substance: INSULIN DETEMIR
  4. LASIX [Concomitant]
     Active Substance: FUROSEMIDE
  5. PROBIOTIC [Concomitant]
     Active Substance: PROBIOTICS NOS
  6. NADOLOL. [Concomitant]
     Active Substance: NADOLOL
  7. SMZ/TMP [Concomitant]
     Active Substance: SULFAMETHOXAZOLE\TRIMETHOPRIM
  8. DOXEPIN [Concomitant]
     Active Substance: DOXEPIN
  9. BACTRIM DS [Concomitant]
     Active Substance: SULFAMETHOXAZOLE\TRIMETHOPRIM
  10. MIRTAZAPINE. [Concomitant]
     Active Substance: MIRTAZAPINE
  11. XIFAXAN [Suspect]
     Active Substance: RIFAXIMIN
     Indication: IRRITABLE BOWEL SYNDROME
     Route: 048
     Dates: start: 20170506
  12. OMEPRAZOLE. [Concomitant]
     Active Substance: OMEPRAZOLE
  13. BACLOFEN. [Concomitant]
     Active Substance: BACLOFEN
  14. REMERON [Concomitant]
     Active Substance: MIRTAZAPINE
  15. DIAZEPAM. [Concomitant]
     Active Substance: DIAZEPAM
  16. LEVOTHYROXIN [Concomitant]
     Active Substance: LEVOTHYROXINE
  17. SPIRONOLACT [Concomitant]
     Active Substance: SPIRONOLACTONE

REACTIONS (1)
  - Death [None]
